FAERS Safety Report 10794446 (Version 5)
Quarter: 2020Q1

REPORT INFORMATION
  Report Type: Spontaneous
  Country: US (occurrence: US)
  Receive Date: 20150213
  Receipt Date: 20200323
  Transmission Date: 20200409
  Serious: No
  Sender: FDA-Public Use
  Company Number: US-PFIZER INC-2015054152

PATIENT
  Age: 73 Year
  Sex: Male
  Weight: 86 kg

DRUGS (3)
  1. METFORMIN [Concomitant]
     Active Substance: METFORMIN HYDROCHLORIDE
     Indication: DIABETES MELLITUS
     Dosage: 1000 MG, 2X/DAY(500MG, CAPSULE, BY MOUTH, TWO TABLETS IN THE MORNING TWO IN THE EVENING)
     Route: 048
  2. LYRICA [Suspect]
     Active Substance: PREGABALIN
     Indication: NEUROPATHY PERIPHERAL
     Dosage: 75 MG, UNK
  3. LYRICA [Suspect]
     Active Substance: PREGABALIN
     Indication: BURNING SENSATION
     Dosage: 150 MG, 2X/DAY
     Route: 048

REACTIONS (2)
  - Pre-existing condition improved [Unknown]
  - Glycosylated haemoglobin decreased [Unknown]
